FAERS Safety Report 21507856 (Version 1)
Quarter: 2022Q4

REPORT INFORMATION
  Report Type: Spontaneous
  Country: US (occurrence: None)
  Receive Date: 20221023
  Receipt Date: 20221023
  Transmission Date: 20230113
  Serious: Yes (Life-Threatening)
  Sender: FDA-Public Use
  Company Number: None

PATIENT
  Age: 50 Year
  Sex: Female

DRUGS (1)
  1. AMYL NITRITE [Suspect]
     Active Substance: AMYL NITRITE

REACTIONS (2)
  - Accidental overdose [None]
  - Methaemoglobinaemia [None]

NARRATIVE: CASE EVENT DATE: 20221019
